FAERS Safety Report 22598591 (Version 1)
Quarter: 2023Q2

REPORT INFORMATION
  Report Type: Spontaneous
  Country: DE (occurrence: DE)
  Receive Date: 20230614
  Receipt Date: 20230614
  Transmission Date: 20230721
  Serious: Yes (Hospitalization)
  Sender: FDA-Public Use
  Company Number: DE-drreddys-LIT/GER/23/0166999

PATIENT
  Sex: Female

DRUGS (1)
  1. BENDAMUSTINE [Suspect]
     Active Substance: BENDAMUSTINE
     Indication: Precursor T-lymphoblastic lymphoma/leukaemia

REACTIONS (3)
  - Precursor T-lymphoblastic lymphoma/leukaemia [Recovered/Resolved]
  - Neoplasm progression [Recovered/Resolved]
  - Drug ineffective [Unknown]
